FAERS Safety Report 5400611-0 (Version None)
Quarter: 2007Q3

REPORT INFORMATION
  Report Type: 
  Country: None (occurrence: None)
  Receive Date: 20070730
  Receipt Date: 20070208
  Transmission Date: 20080115
  Serious: No
  Sender: FDA-Public Use
  Company Number: A0639241A

PATIENT
  Age: 74 Year
  Sex: Female

DRUGS (2)
  1. ZANTAC 150 [Suspect]
     Route: 065
     Dates: start: 20070101, end: 20070101
  2. RANITIDINE [Suspect]
     Dosage: 75MG TWICE PER DAY
     Route: 048
     Dates: start: 20070108, end: 20070123

REACTIONS (1)
  - DRUG INEFFECTIVE [None]
